FAERS Safety Report 8292025-3 (Version None)
Quarter: 2012Q2

REPORT INFORMATION
  Report Type: 
  Country: None (occurrence: None)
  Receive Date: 20120412
  Receipt Date: 20120404
  Transmission Date: 20120825
  Serious: Yes (Hospitalization)
  Sender: FDA-Public Use
  Company Number: 2012SP008054

PATIENT
  Age: 34 Year
  Sex: Female
  Weight: 99.8 kg

DRUGS (7)
  1. TRANEXAMIC ACID [Suspect]
     Dosage: 1 DF; QID; PO
     Route: 048
     Dates: start: 20100922, end: 20100928
  2. LANSOPRAZOLE [Suspect]
     Indication: GASTROOESOPHAGEAL REFLUX PROPHYLAXIS
     Dosage: 30 MG; ONCE; PO
     Route: 048
     Dates: start: 20100907, end: 20100928
  3. NPLATE [Suspect]
     Indication: IDIOPATHIC THROMBOCYTOPENIC PURPURA
     Dosage: 1 MG/KG; SC
     Route: 058
     Dates: start: 20100920, end: 20100920
  4. IMMUNE GLOBULIN (HUMAN) [Suspect]
     Dosage: 1000 MG/KG; QD; INDRP
     Route: 041
     Dates: start: 20100922, end: 20100923
  5. DEXAMETHASONE [Suspect]
     Indication: ANTIEMETIC SUPPORTIVE CARE
     Dosage: PO
     Route: 048
     Dates: start: 20100907, end: 20100910
  6. RITUXAN [Suspect]
     Dosage: 375 MG/M2; BIW; INDRP
     Route: 041
     Dates: start: 20100917, end: 20100924
  7. NORETHINDRONE [Suspect]
     Dosage: 5 MG; TID; PO
     Route: 048
     Dates: start: 20100922, end: 20100928

REACTIONS (9)
  - SPLENECTOMY [None]
  - VAGINAL HAEMORRHAGE [None]
  - RECTAL HAEMORRHAGE [None]
  - HAEMOGLOBIN DECREASED [None]
  - PURPURA [None]
  - RASH MACULO-PAPULAR [None]
  - OROPHARYNGEAL BLISTERING [None]
  - RASH ERYTHEMATOUS [None]
  - ARTHRALGIA [None]
